FAERS Safety Report 19062326 (Version 1)
Quarter: 2021Q1

REPORT INFORMATION
  Report Type: Spontaneous
  Country: US (occurrence: US)
  Receive Date: 20210325
  Receipt Date: 20210325
  Transmission Date: 20210420
  Serious: No
  Sender: FDA-Public Use
  Company Number: None

PATIENT
  Age: 53 Year
  Sex: Female
  Weight: 69.4 kg

DRUGS (2)
  1. PROMETRIUM [Concomitant]
     Active Substance: PROGESTERONE
  2. PROGESTERONE. [Suspect]
     Active Substance: PROGESTERONE
     Dates: start: 20160907, end: 20161010

REACTIONS (3)
  - Hyperhidrosis [None]
  - Rash [None]
  - Urticaria [None]
